FAERS Safety Report 22323492 (Version 1)
Quarter: 2023Q2

REPORT INFORMATION
  Report Type: Spontaneous
  Country: IN (occurrence: IN)
  Receive Date: 20230516
  Receipt Date: 20230516
  Transmission Date: 20230721
  Serious: Yes (Life-Threatening, Hospitalization, Other)
  Sender: FDA-Public Use
  Company Number: IN-MLMSERVICE-20230427-4249540-2

PATIENT
  Age: 65 Year
  Sex: Female

DRUGS (3)
  1. DOCETAXEL [Suspect]
     Active Substance: DOCETAXEL
     Indication: Breast cancer
     Dates: start: 2021, end: 202109
  2. DOCETAXEL [Suspect]
     Active Substance: DOCETAXEL
     Dates: start: 202107, end: 2021
  3. DOCETAXEL [Suspect]
     Active Substance: DOCETAXEL

REACTIONS (3)
  - Respiratory failure [Recovering/Resolving]
  - Pulmonary toxicity [Recovering/Resolving]
  - Organising pneumonia [Recovering/Resolving]

NARRATIVE: CASE EVENT DATE: 20210101
